FAERS Safety Report 5206999-8 (Version None)
Quarter: 2007Q1

REPORT INFORMATION
  Report Type: 
  Country: None (occurrence: None)
  Receive Date: 20070110
  Receipt Date: 20061229
  Transmission Date: 20070707
  Serious: Yes (Death, Hospitalization, Other)
  Sender: FDA-Public Use
  Company Number: 2006BI019176

PATIENT
  Age: 77 Year
  Sex: Female
  Weight: 90.7194 kg

DRUGS (1)
  1. AVONEX [Suspect]
     Indication: MULTIPLE SCLEROSIS
     Dosage: 30 UG;QW;IM
     Route: 030

REACTIONS (8)
  - ACUTE RESPIRATORY DISTRESS SYNDROME [None]
  - DEPRESSION [None]
  - DROOLING [None]
  - HYPERTENSION [None]
  - PNEUMONIA [None]
  - PSEUDOMONAS INFECTION [None]
  - RENAL FAILURE [None]
  - UNRESPONSIVE TO STIMULI [None]
